FAERS Safety Report 5412900-4 (Version None)
Quarter: 2007Q3

REPORT INFORMATION
  Report Type: 
  Country: None (occurrence: None)
  Receive Date: 20070813
  Receipt Date: 20070802
  Transmission Date: 20080115
  Serious: Yes (Other)
  Sender: FDA-Public Use
  Company Number: US-PFIZER INC-2007065352

PATIENT
  Sex: Female
  Weight: 86.2 kg

DRUGS (5)
  1. LYRICA [Suspect]
     Indication: DIABETIC NEUROPATHY
     Dates: start: 20060101, end: 20070101
  2. VALSARTAN [Concomitant]
  3. LIPITOR [Concomitant]
  4. NOVOLOG [Concomitant]
     Indication: DIABETES MELLITUS
  5. LANTUS [Concomitant]
     Indication: DIABETES MELLITUS

REACTIONS (9)
  - ADVERSE EVENT [None]
  - ANGINA PECTORIS [None]
  - BLOOD CREATININE INCREASED [None]
  - DISCOMFORT [None]
  - GAIT DISTURBANCE [None]
  - GLYCOSYLATED HAEMOGLOBIN INCREASED [None]
  - LABORATORY TEST ABNORMAL [None]
  - OEDEMA DUE TO CARDIAC DISEASE [None]
  - OEDEMA PERIPHERAL [None]
